FAERS Safety Report 15314752 (Version 1)
Quarter: 2018Q3

REPORT INFORMATION
  Report Type: Spontaneous
  Country: US (occurrence: US)
  Receive Date: 20180815
  Receipt Date: 20180815
  Transmission Date: 20181010
  Serious: Yes (Other)
  Sender: FDA-Public Use
  Company Number: None

PATIENT
  Age: 36 Year
  Sex: Female
  Weight: 59.87 kg

DRUGS (8)
  1. CALCIUM [Concomitant]
     Active Substance: CALCIUM
  2. PROBIOTIC WITH A PREBIOTIC [Concomitant]
  3. VITAMINS C [Concomitant]
  4. GLUCOSAMINE [Concomitant]
     Active Substance: GLUCOSAMINE
  5. OMEPREZOLE [Concomitant]
     Active Substance: OMEPRAZOLE
  6. MAGNESIUM [Concomitant]
     Active Substance: MAGNESIUM
  7. MIRENA [Suspect]
     Active Substance: LEVONORGESTREL
  8. MULTI VITAMIN [Concomitant]
     Active Substance: VITAMINS

REACTIONS (2)
  - Loss of libido [None]
  - Libido decreased [None]

NARRATIVE: CASE EVENT DATE: 20150808
